FAERS Safety Report 16027595 (Version 3)
Quarter: 2019Q3

REPORT INFORMATION
  Report Type: Report from Study
  Country: ZA (occurrence: ZA)
  Receive Date: 20190304
  Receipt Date: 20190905
  Transmission Date: 20191004
  Serious: Yes (Hospitalization, Other)
  Sender: FDA-Public Use
  Company Number: ZA-VIIV HEALTHCARE LIMITED-ZA2019GSK036417

PATIENT
  Age: 12 Month

DRUGS (9)
  1. LOPINAVIR AND RITONAVIR [Concomitant]
     Active Substance: LOPINAVIR\RITONAVIR
     Indication: HIV INFECTION
     Dosage: 4 ML, BID
     Dates: start: 20181003
  2. LAMIVUDINE. [Concomitant]
     Active Substance: LAMIVUDINE
     Indication: HIV INFECTION
     Dosage: 2 ML, BID
     Dates: start: 20180221
  3. ABACAVIR. [Concomitant]
     Active Substance: ABACAVIR
     Indication: HIV INFECTION
     Dosage: 2 ML, BID
     Dates: start: 20180622
  4. PYRAZINAMIDE. [Concomitant]
     Active Substance: PYRAZINAMIDE
     Dosage: 250 MG, UNK
     Dates: start: 20181031, end: 20190621
  5. DOLUTEGRAVIR [Suspect]
     Active Substance: DOLUTEGRAVIR
     Indication: HIV INFECTION
     Dosage: 50 MG, QD
     Route: 048
     Dates: start: 20180124
  6. EMTRICITABIN + TENOFOVIR [Concomitant]
     Indication: HIV INFECTION
     Dosage: 200/300 MG
     Dates: start: 20180124
  7. ISONIAZID + RIFAMPICIN [Concomitant]
     Active Substance: ISONIAZID\RIFAMPIN
     Dosage: 2 DF (60/60), QD
     Dates: start: 20181031, end: 20190621
  8. PYRIDOXINE [Concomitant]
     Active Substance: PYRIDOXINE
     Dosage: 12.5 MG, UNK
     Dates: start: 20181031, end: 20190621
  9. COTRIMOXAZOLE [Concomitant]
     Active Substance: SULFAMETHOXAZOLE\TRIMETHOPRIM
     Dosage: 2.5 ML, UNK
     Dates: start: 20181031, end: 20190621

REACTIONS (1)
  - Febrile convulsion [Recovered/Resolved]

NARRATIVE: CASE EVENT DATE: 20190220
